FAERS Safety Report 8907146 (Version 1)
Quarter: 2012Q4

REPORT INFORMATION
  Report Type: 
  Country: US (occurrence: US)
  Receive Date: 20121113
  Receipt Date: 20121113
  Transmission Date: 20130627
  Serious: No
  Sender: FDA-Public Use
  Company Number: US-AMGEN-USASP2012010779

PATIENT
  Sex: Female

DRUGS (2)
  1. ENBREL [Suspect]
     Indication: RHEUMATOID ARTHRITIS
     Dosage: 50 mg, qwk
     Dates: start: 201002
  2. BENADRYL                           /00000402/ [Concomitant]
     Indication: INJECTION SITE REACTION
     Dosage: UNK

REACTIONS (3)
  - Injection site reaction [Unknown]
  - Injection site pruritus [Unknown]
  - Injection site vesicles [Unknown]
